FAERS Safety Report 8883932 (Version 1)
Quarter: 2012Q4

REPORT INFORMATION
  Report Type: 
  Country: US (occurrence: US)
  Receive Date: 20121102
  Receipt Date: 20121102
  Transmission Date: 20130627
  Serious: Yes (Hospitalization)
  Sender: FDA-Public Use
  Company Number: US-ELI_LILLY_AND_COMPANY-US201109008006

PATIENT
  Age: 74 Year
  Sex: Female

DRUGS (13)
  1. FORTEO [Suspect]
     Indication: OSTEOPOROSIS
     Dosage: 20 ug, qd
     Route: 065
     Dates: start: 201108
  2. FORTEO [Suspect]
     Dosage: 20 ug, qd
     Route: 065
  3. FORTEO [Suspect]
     Dosage: 20 ug, qd
  4. FORTEO [Suspect]
     Dosage: 20 ug, qd
  5. LEVOTHYROXINE [Concomitant]
     Dosage: 50 ug, qd
  6. RESTASIS [Concomitant]
     Dosage: UNK, qd
  7. IPRATROPIUM BROMIDE [Concomitant]
     Dosage: UNK, bid
  8. MULTIVITAMIN [Concomitant]
  9. CALCIUM+D3 [Concomitant]
     Dosage: 1000 mg, qd
  10. FISH OIL [Concomitant]
     Dosage: UNK UNK, bid
  11. ESTER-C [Concomitant]
     Dosage: 500 mg, qd
  12. GLUCOSAMINE CHONDROITIN [Concomitant]
     Dosage: UNK UNK, qd
  13. PROBIOTICS [Concomitant]

REACTIONS (10)
  - Fall [Unknown]
  - Humerus fracture [Unknown]
  - Wrist fracture [Unknown]
  - Jaw fracture [Unknown]
  - Injection site haemorrhage [Unknown]
  - Venous injury [Unknown]
  - Hearing impaired [Unknown]
  - Injection site bruising [Unknown]
  - Injection site discomfort [Unknown]
  - Injection site pain [Unknown]
